FAERS Safety Report 8606020-5 (Version None)
Quarter: 2012Q3

REPORT INFORMATION
  Report Type: 
  Country: None (occurrence: None)
  Receive Date: 20120820
  Receipt Date: 20120810
  Transmission Date: 20120928
  Serious: Yes (Other)
  Sender: FDA-Public Use
  Company Number: US-ASTRAZENECA-2012SE56576

PATIENT
  Age: 68 Year
  Sex: Female
  Weight: 72.6 kg

DRUGS (4)
  1. CRESTOR [Suspect]
     Indication: BLOOD CHOLESTEROL INCREASED
     Route: 048
  2. LOPRESSOR [Concomitant]
     Dosage: GENERIC
  3. ARIMIDEX [Suspect]
     Dosage: GENERIC
     Route: 048
  4. FOSAMAX [Concomitant]
     Dosage: GENERIC

REACTIONS (1)
  - BREAST CANCER FEMALE [None]
